FAERS Safety Report 7775246-5 (Version None)
Quarter: 2011Q3

REPORT INFORMATION
  Report Type: 
  Country: None (occurrence: None)
  Receive Date: 20110923
  Receipt Date: 20101014
  Transmission Date: 20111222
  Serious: No
  Sender: FDA-Public Use
  Company Number: US-BRISTOL-MYERS SQUIBB COMPANY-15335334

PATIENT
  Age: 35 Year
  Sex: Female

DRUGS (1)
  1. MEGACE [Suspect]

REACTIONS (1)
  - WEIGHT INCREASED [None]
